FAERS Safety Report 13152253 (Version 3)
Quarter: 2017Q1

REPORT INFORMATION
  Report Type: Spontaneous
  Country: JP (occurrence: JP)
  Receive Date: 20170125
  Receipt Date: 20170331
  Transmission Date: 20170428
  Serious: Yes (Life-Threatening, Hospitalization, Other)
  Sender: FDA-Public Use
  Company Number: JP-BAUSCH-BL-2016-031979

PATIENT
  Age: 79 Year
  Sex: Female

DRUGS (4)
  1. SODIUM PICOSULFATE HYDRATE [Concomitant]
     Indication: PRODUCT USED FOR UNKNOWN INDICATION
     Dates: start: 20161127, end: 20161127
  2. PETHIDINE HYDROCHLORIDE [Concomitant]
     Active Substance: MEPERIDINE HYDROCHLORIDE
     Indication: PRODUCT USED FOR UNKNOWN INDICATION
  3. SOLACET F [Concomitant]
     Indication: PRODUCT USED FOR UNKNOWN INDICATION
  4. MOVIPREP [Suspect]
     Active Substance: ASCORBIC ACID\POLYETHYLENE GLYCOL 3350\POTASSIUM CHLORIDE\SODIUM ASCORBATE\SODIUM CHLORIDE\SODIUM SULFATE
     Indication: ENDOSCOPY LARGE BOWEL
     Route: 048
     Dates: start: 20161128, end: 20161128

REACTIONS (8)
  - Hyponatraemia [Recovered/Resolved]
  - Fatigue [Recovered/Resolved]
  - Altered state of consciousness [Recovered/Resolved]
  - Muscular weakness [Recovered/Resolved]
  - Seizure [Recovered/Resolved]
  - Nausea [Recovered/Resolved]
  - Feeling abnormal [Recovered/Resolved]
  - Dysarthria [Recovered/Resolved]

NARRATIVE: CASE EVENT DATE: 20161128
